APPROVED DRUG PRODUCT: MONOFERRIC
Active Ingredient: FERRIC DERISOMALTOSE
Strength: 500MG/5ML (100MG/ML)
Dosage Form/Route: SOLUTION;INTRAVENOUS
Application: N208171 | Product #002
Applicant: PHARMACOSMOS AS
Approved: Jan 16, 2020 | RLD: Yes | RS: No | Type: DISCN

PATENTS:
Patent 11633489 | Expires: Jun 22, 2036
Patent 8815301 | Expires: Aug 14, 2029
Patent 10414831 | Expires: Mar 25, 2029
Patent 11851504 | Expires: Mar 25, 2029
Patent 12030962 | Expires: Mar 25, 2029